FAERS Safety Report 10693051 (Version 2)
Quarter: 2015Q1

REPORT INFORMATION
  Report Type: Spontaneous
  Country: US (occurrence: US)
  Receive Date: 20150106
  Receipt Date: 20150119
  Transmission Date: 20150720
  Serious: Yes (Other)
  Sender: FDA-Public Use
  Company Number: US-APOTEX-2014AP006557

PATIENT
  Age: 8 Week
  Sex: Male

DRUGS (2)
  1. DEXAMETHASONE. [Suspect]
     Active Substance: DEXAMETHASONE
     Indication: HISTIOCYTOSIS HAEMATOPHAGIC
     Dosage: UNK
     Route: 065
  2. CYCLOSPORINE. [Suspect]
     Active Substance: CYCLOSPORINE
     Indication: HISTIOCYTOSIS HAEMATOPHAGIC
     Dosage: UNK
     Route: 065

REACTIONS (6)
  - Encephalitis [Unknown]
  - Epilepsy [Not Recovered/Not Resolved]
  - Candida infection [Recovering/Resolving]
  - Encephalopathy [Not Recovered/Not Resolved]
  - Septic shock [Unknown]
  - Multi-organ failure [Unknown]
